FAERS Safety Report 5358907-7 (Version None)
Quarter: 2007Q2

REPORT INFORMATION
  Report Type: 
  Country: None (occurrence: None)
  Receive Date: 20070615
  Receipt Date: 20070605
  Transmission Date: 20071010
  Serious: Yes (Life-Threatening)
  Sender: FDA-Public Use
  Company Number: B0469199A

PATIENT
  Age: 30 Year
  Sex: Female

DRUGS (6)
  1. TRACRIUM [Suspect]
     Dosage: 25MG PER DAY
     Route: 042
     Dates: start: 20000804, end: 20000804
  2. AUGMENTIN '125' [Concomitant]
     Dosage: 1G PER DAY
     Route: 042
     Dates: start: 20000804, end: 20000804
  3. CLAMOXYL IV [Concomitant]
     Dosage: 1G PER DAY
     Route: 042
     Dates: start: 20000804, end: 20000804
  4. HYPNOVEL [Concomitant]
     Dosage: 3MG PER DAY
     Route: 042
     Dates: start: 20000804, end: 20000804
  5. DIPRIVAN [Concomitant]
     Route: 042
     Dates: start: 20000804, end: 20000804
  6. SUFENTANIL CITRATE [Concomitant]
     Dosage: 30MCG PER DAY
     Route: 042
     Dates: start: 20000804, end: 20000804

REACTIONS (5)
  - BRONCHOSPASM [None]
  - DRUG HYPERSENSITIVITY [None]
  - HYPOTENSION [None]
  - LARYNGOSPASM [None]
  - RASH ERYTHEMATOUS [None]
